FAERS Safety Report 17439246 (Version 1)
Quarter: 2020Q1

REPORT INFORMATION
  Report Type: Spontaneous
  Country: BS (occurrence: BS)
  Receive Date: 20200220
  Receipt Date: 20200220
  Transmission Date: 20200409
  Serious: Yes (Hospitalization, Other)
  Sender: FDA-Public Use
  Company Number: BS-GLAXOSMITHKLINE-BS2015GSK038210

PATIENT
  Age: 8 Year
  Sex: Female

DRUGS (1)
  1. LAMICTAL [Suspect]
     Active Substance: LAMOTRIGINE
     Indication: SEIZURE
     Dosage: UNK
     Dates: start: 2010

REACTIONS (4)
  - Blindness [Unknown]
  - Injury corneal [Unknown]
  - Scar [Unknown]
  - Stevens-Johnson syndrome [Unknown]
